FAERS Safety Report 8127758-2 (Version None)
Quarter: 2012Q1

REPORT INFORMATION
  Report Type: 
  Country: None (occurrence: None)
  Receive Date: 20120210
  Receipt Date: 20120203
  Transmission Date: 20120608
  Serious: Yes (Other)
  Sender: FDA-Public Use
  Company Number: US-PFIZER INC-2011303754

PATIENT
  Sex: Male

DRUGS (7)
  1. MAGNESIUM OXIDE [Concomitant]
     Indication: MINERAL SUPPLEMENTATION
     Dosage: 400 MG, 2X/DAY
  2. OMEPRAZOLE [Concomitant]
     Indication: GASTRIC DISORDER
     Dosage: 40 MG, DAILY
  3. XANAX [Concomitant]
     Indication: ANXIETY
     Dosage: 1 MG, 2X/DAY
     Route: 048
  4. COLACE [Concomitant]
     Indication: CONSTIPATION
     Dosage: 100 MG, 3X/DAY
  5. FERROUS SULFIDE [Concomitant]
     Indication: SUPPLEMENTATION THERAPY
     Dosage: 325 MG, 3X/DAY
  6. PERCOCET [Concomitant]
     Indication: PAIN
     Dosage: 5/325MG,4X/DAY
     Route: 048
  7. RAPAMUNE [Suspect]
     Indication: PROPHYLAXIS AGAINST TRANSPLANT REJECTION
     Dosage: 5 MG, 1X/DAY
     Route: 048
     Dates: start: 20111101

REACTIONS (3)
  - POST PROCEDURAL HAEMORRHAGE [None]
  - ASCITES [None]
  - APHAGIA [None]
